FAERS Safety Report 4302901-1 (Version None)
Quarter: 2004Q1

REPORT INFORMATION
  Report Type: 
  Country: None (occurrence: None)
  Receive Date: 20040126
  Receipt Date: 20030925
  Transmission Date: 20041129
  Serious: No
  Sender: FDA-Public Use
  Company Number: USA030948234

PATIENT
  Age: 37 Year
  Sex: Male
  Weight: 141 kg

DRUGS (3)
  1. STRATTERA [Suspect]
     Indication: DISTURBANCE IN ATTENTION
     Dosage: 80 MG/DAY
     Dates: start: 20030901
  2. LITHIUM [Concomitant]
  3. LEXAPRO [Concomitant]
     Indication: DISTURBANCE IN ATTENTION
     Dosage: 80 MG/DAY
     Dates: start: 20030901

REACTIONS (4)
  - DRUG EFFECT DECREASED [None]
  - FEELING ABNORMAL [None]
  - INSOMNIA [None]
  - SOMNOLENCE [None]
